FAERS Safety Report 6546261-4 (Version None)
Quarter: 2010Q1

REPORT INFORMATION
  Report Type: 
  Country: None (occurrence: None)
  Receive Date: 20100122
  Receipt Date: 20100119
  Transmission Date: 20100710
  Serious: Yes (Other)
  Sender: FDA-Public Use
  Company Number: DE-BRISTOL-MYERS SQUIBB COMPANY-14939920

PATIENT
  Sex: Male

DRUGS (1)
  1. KARVEA [Suspect]

REACTIONS (1)
  - LEUKOCYTOCLASTIC VASCULITIS [None]
